FAERS Safety Report 19025006 (Version 2)
Quarter: 2021Q2

REPORT INFORMATION
  Report Type: Spontaneous
  Country: US (occurrence: US)
  Receive Date: 20210318
  Receipt Date: 20210506
  Transmission Date: 20210717
  Serious: No
  Sender: FDA-Public Use
  Company Number: US-GLENMARK PHARMACEUTICALS-2021GMK052690

PATIENT

DRUGS (3)
  1. TACROLIMUS. [Suspect]
     Active Substance: TACROLIMUS
     Indication: RASH PRURITIC
     Dosage: UNK, BID
     Route: 061
     Dates: start: 20210302, end: 202103
  2. VITAMINS NOS [Concomitant]
     Active Substance: VITAMINS
     Indication: PRODUCT USED FOR UNKNOWN INDICATION
     Dosage: UNK
     Route: 065
  3. TACROLIMUS. [Suspect]
     Active Substance: TACROLIMUS
     Indication: BURNING SENSATION

REACTIONS (7)
  - Skin exfoliation [Recovering/Resolving]
  - Accidental exposure to product [Unknown]
  - Application site pruritus [Recovered/Resolved]
  - Erythema of eyelid [Recovered/Resolved]
  - Eye irritation [Recovered/Resolved]
  - Application site pain [Recovered/Resolved]
  - Eye discharge [Recovered/Resolved]

NARRATIVE: CASE EVENT DATE: 2021
